FAERS Safety Report 8327099-4 (Version None)
Quarter: 2012Q2

REPORT INFORMATION
  Report Type: 
  Country: None (occurrence: None)
  Receive Date: 20120501
  Receipt Date: 20120229
  Transmission Date: 20120825
  Serious: No
  Sender: FDA-Public Use
  Company Number: US-SANOFI-AVENTIS-2012SA014182

PATIENT
  Age: 50 Year
  Sex: Female
  Weight: 60.45 kg

DRUGS (4)
  1. APIDRA [Suspect]
     Dosage: SLIDING SCALE DOSAGE
     Route: 058
     Dates: start: 20070101
  2. SOLOSTAR [Suspect]
     Dates: start: 20070101
  3. ALL OTHER THERAPEUTIC PRODUCTS [Concomitant]
     Dates: start: 20000101
  4. ALL OTHER THERAPEUTIC PRODUCTS [Concomitant]
     Dates: start: 20100101, end: 20120309

REACTIONS (6)
  - DIZZINESS [None]
  - PRODUCT QUALITY ISSUE [None]
  - DRUG INEFFECTIVE [None]
  - BLOOD GLUCOSE INCREASED [None]
  - HEART RATE INCREASED [None]
  - HYPERTENSION [None]
